FAERS Safety Report 7749110-1 (Version None)
Quarter: 2011Q3

REPORT INFORMATION
  Report Type: 
  Country: None (occurrence: None)
  Receive Date: 20110914
  Receipt Date: 20110909
  Transmission Date: 20111222
  Serious: Yes (Hospitalization, Other)
  Sender: FDA-Public Use
  Company Number: US-PFIZER INC-2010101509

PATIENT
  Sex: Female

DRUGS (2)
  1. DILANTIN [Suspect]
     Indication: CONVULSION
     Dosage: UNK
     Route: 042
     Dates: start: 20071215
  2. DILANTIN [Suspect]
     Dosage: UNK
     Dates: end: 20080108

REACTIONS (1)
  - STEVENS-JOHNSON SYNDROME [None]
